FAERS Safety Report 11102186 (Version 2)
Quarter: 2016Q1

REPORT INFORMATION
  Report Type: Report from Study
  Country: US (occurrence: US)
  Receive Date: 20150511
  Receipt Date: 20160106
  Transmission Date: 20160525
  Serious: Yes (Other)
  Sender: FDA-Public Use
  Company Number: US-ROCHE-1572031

PATIENT
  Age: 61 Year
  Sex: Female
  Weight: 61.74 kg

DRUGS (9)
  1. QUINAPRIL [Concomitant]
     Active Substance: QUINAPRIL\QUINAPRIL HYDROCHLORIDE
     Indication: HYPERTENSION
  2. PLAVIX [Concomitant]
     Active Substance: CLOPIDOGREL BISULFATE
  3. TOPROL XL [Concomitant]
     Active Substance: METOPROLOL SUCCINATE
     Indication: ANGINA PECTORIS
  4. VYTORIN [Concomitant]
     Active Substance: EZETIMIBE\SIMVASTATIN
  5. ACTEMRA [Suspect]
     Active Substance: TOCILIZUMAB
     Indication: RHEUMATOID ARTHRITIS
  6. RITUXAN [Suspect]
     Active Substance: RITUXIMAB
     Indication: PRODUCT USED FOR UNKNOWN INDICATION
     Route: 065
  7. ACTEMRA [Suspect]
     Active Substance: TOCILIZUMAB
     Indication: NON-HODGKIN^S LYMPHOMA
     Route: 058
  8. PLAVIX [Concomitant]
     Active Substance: CLOPIDOGREL BISULFATE
  9. METHOTREXATE [Concomitant]
     Active Substance: METHOTREXATE

REACTIONS (20)
  - Ear infection [Unknown]
  - Ophthalmic herpes zoster [Unknown]
  - Blood pressure increased [Unknown]
  - Lower extremity mass [Unknown]
  - Contusion [Unknown]
  - Fatigue [Unknown]
  - Hepatic enzyme increased [Unknown]
  - Weight bearing difficulty [Unknown]
  - Pain [Unknown]
  - Sinusitis [Unknown]
  - Fall [Not Recovered/Not Resolved]
  - Dysstasia [Unknown]
  - Off label use [Unknown]
  - Arthralgia [Unknown]
  - Drug dose omission [Unknown]
  - Intervertebral disc degeneration [Unknown]
  - Heart rate increased [Unknown]
  - Pelvic pain [Unknown]
  - Angina pectoris [Unknown]
  - Poor quality sleep [Unknown]

NARRATIVE: CASE EVENT DATE: 20141107
